FAERS Safety Report 4305483-3 (Version None)
Quarter: 2004Q1

REPORT INFORMATION
  Report Type: 
  Country: None (occurrence: None)
  Receive Date: 20040226
  Receipt Date: 20030926
  Transmission Date: 20041129
  Serious: No
  Sender: FDA-Public Use
  Company Number: US-BRISTOL-MYERS SQUIBB COMPANY-12394953

PATIENT
  Age: 41 Year
  Sex: Male

DRUGS (5)
  1. ABILIFY [Suspect]
     Indication: BIPOLAR DISORDER
     Dosage: REDUCED DOSE TO 3.75 MG/DAY
     Route: 048
     Dates: start: 20030911
  2. VERAPAMIL [Concomitant]
  3. LISINOPRIL [Concomitant]
  4. CLONAZEPAM [Concomitant]
  5. ACIPHEX [Concomitant]

REACTIONS (1)
  - NIGHTMARE [None]
